FAERS Safety Report 5469534-5 (Version None)
Quarter: 2007Q3

REPORT INFORMATION
  Report Type: 
  Country: None (occurrence: None)
  Receive Date: 20070927
  Receipt Date: 20070923
  Transmission Date: 20080115
  Serious: No
  Sender: FDA-Public Use
  Company Number: B0488057A

PATIENT
  Age: 20 Year
  Sex: Female

DRUGS (3)
  1. SERETIDE [Suspect]
     Indication: DRUG USE FOR UNKNOWN INDICATION
     Dosage: 250MCG TWICE PER DAY
     Route: 055
     Dates: start: 20070919, end: 20070919
  2. KIPRES [Concomitant]
     Route: 048
  3. MUCOSOLVAN [Concomitant]
     Route: 048

REACTIONS (3)
  - ASTHENIA [None]
  - DIZZINESS [None]
  - HEADACHE [None]
